FAERS Safety Report 5038417-7 (Version None)
Quarter: 2006Q2

REPORT INFORMATION
  Report Type: 
  Country: None (occurrence: None)
  Receive Date: 20060626
  Receipt Date: 20060626
  Transmission Date: 20061013
  Serious: Yes (Life-Threatening, Hospitalization, Other)
  Sender: FDA-Public Use
  Company Number: None

PATIENT
  Sex: Female
  Weight: 55.7924 kg

DRUGS (2)
  1. PEPCID AC [Suspect]
     Indication: DYSPEPSIA
     Dates: start: 20060610, end: 20060610
  2. PREDNISONE [Concomitant]

REACTIONS (9)
  - BLISTER [None]
  - BLOOD PRESSURE INCREASED [None]
  - DYSGEUSIA [None]
  - DYSPHAGIA [None]
  - EYE SWELLING [None]
  - PHARYNGEAL OEDEMA [None]
  - RASH [None]
  - SWELLING FACE [None]
  - SWOLLEN TONGUE [None]
